FAERS Safety Report 8966078 (Version 1)
Quarter: 2012Q4

REPORT INFORMATION
  Report Type: 
  Country: US (occurrence: US)
  Receive Date: 20121217
  Receipt Date: 20121217
  Transmission Date: 20130627
  Serious: No
  Sender: FDA-Public Use
  Company Number: US-PFIZER INC-2012314743

PATIENT
  Sex: Female

DRUGS (4)
  1. CELEBREX [Suspect]
     Indication: INFLAMMATION
     Dosage: 200 mg, 2x/day
  2. ATENOLOL [Concomitant]
     Indication: BLOOD PRESSURE HIGH
     Dosage: UNK
  3. DILANTIN [Concomitant]
     Indication: SEIZURES
     Dosage: UNK
  4. PHENOBARBITAL [Concomitant]
     Indication: SEIZURES
     Dosage: UNK

REACTIONS (2)
  - Muscle atrophy [Unknown]
  - Depressed mood [Unknown]
